FAERS Safety Report 8034577-4 (Version None)
Quarter: 2012Q1

REPORT INFORMATION
  Report Type: 
  Country: None (occurrence: None)
  Receive Date: 20120110
  Receipt Date: 20120103
  Transmission Date: 20120608
  Serious: Yes (Hospitalization)
  Sender: FDA-Public Use
  Company Number: GR-ABBOTT-12P-066-0888802-00

PATIENT
  Sex: Male
  Weight: 72.3 kg

DRUGS (6)
  1. FISIOTENS [Concomitant]
     Indication: HYPERTENSION
     Dates: start: 20101029
  2. ZEMPLAR [Suspect]
     Indication: RENAL FAILURE CHRONIC
     Route: 048
     Dates: start: 20100127, end: 20101129
  3. LANTUS [Concomitant]
     Indication: TYPE 2 DIABETES MELLITUS
     Dosage: IN THE EVENING
     Route: 058
     Dates: start: 20100512
  4. LANTHANUM CARBONATE [Concomitant]
     Indication: HYPERPHOSPHATAEMIA
  5. NORVASC [Concomitant]
     Indication: HYPERTENSION
     Dates: start: 20101030
  6. CARVEDILOL [Concomitant]
     Indication: HYPERTENSION
     Route: 048
     Dates: start: 20100512

REACTIONS (3)
  - RECTAL HAEMORRHAGE [None]
  - ULCER [None]
  - DIVERTICULUM INTESTINAL [None]
